FAERS Safety Report 16510156 (Version 1)
Quarter: 2019Q3

REPORT INFORMATION
  Report Type: Spontaneous
  Country: US (occurrence: US)
  Receive Date: 20190701
  Receipt Date: 20190701
  Transmission Date: 20191004
  Serious: Yes (Hospitalization)
  Sender: FDA-Public Use
  Company Number: None

PATIENT
  Age: 80 Year
  Sex: Male

DRUGS (12)
  1. PRAVASTATIN. [Concomitant]
     Active Substance: PRAVASTATIN
  2. WARFARIN [Concomitant]
     Active Substance: WARFARIN
  3. METOPROLOL. [Concomitant]
     Active Substance: METOPROLOL
  4. BREO ELLIPTA [Concomitant]
     Active Substance: FLUTICASONE FUROATE\VILANTEROL TRIFENATATE
  5. CALCIUM [Concomitant]
     Active Substance: CALCIUM
  6. MEGESTROL [Concomitant]
     Active Substance: MEGESTROL
  7. SPIRIVA [Concomitant]
     Active Substance: TIOTROPIUM BROMIDE MONOHYDRATE
  8. ABIRATERONE. [Concomitant]
     Active Substance: ABIRATERONE ACETATE
  9. DILTIAZEM. [Concomitant]
     Active Substance: DILTIAZEM
  10. PREDNISONE. [Suspect]
     Active Substance: PREDNISONE
     Indication: BLADDER CANCER
     Route: 048
  11. ALENDRONATE [Concomitant]
     Active Substance: ALENDRONATE SODIUM
  12. TORSEMIDE. [Concomitant]
     Active Substance: TORSEMIDE

REACTIONS (2)
  - Hypersensitivity [None]
  - Infection [None]

NARRATIVE: CASE EVENT DATE: 20190626
